FAERS Safety Report 4610941-8 (Version None)
Quarter: 2005Q1

REPORT INFORMATION
  Report Type: 
  Country: None (occurrence: None)
  Receive Date: 20050315
  Receipt Date: 20050315
  Transmission Date: 20050727
  Serious: Yes (Hospitalization, Other)
  Sender: FDA-Public Use
  Company Number: None

PATIENT
  Sex: Male
  Weight: 26.3086 kg

DRUGS (4)
  1. ABILIFY [Suspect]
     Indication: ATTENTION DEFICIT/HYPERACTIVITY DISORDER
     Dosage: 5MG PILL  2 TIME DAILY
     Dates: start: 20050309, end: 20050311
  2. ABILIFY [Suspect]
     Indication: DEPRESSION
     Dosage: 5MG PILL  2 TIME DAILY
     Dates: start: 20050309, end: 20050311
  3. STRATTERA [Suspect]
     Indication: ATTENTION DEFICIT/HYPERACTIVITY DISORDER
     Dosage: 125 MG PILL  ONCE DAILY
     Dates: start: 20050307, end: 20050309
  4. STRATTERA [Suspect]
     Indication: DEPRESSION
     Dosage: 125 MG PILL  ONCE DAILY
     Dates: start: 20050307, end: 20050309

REACTIONS (3)
  - ABNORMAL BEHAVIOUR [None]
  - FEELING ABNORMAL [None]
  - SOMNOLENCE [None]
